FAERS Safety Report 12746549 (Version 1)
Quarter: 2016Q3

REPORT INFORMATION
  Report Type: Spontaneous
  Country: US (occurrence: US)
  Receive Date: 20160915
  Receipt Date: 20160915
  Transmission Date: 20161109
  Serious: Yes (Life-Threatening, Hospitalization)
  Sender: FDA-Public Use
  Company Number: None

PATIENT
  Age: 78 Year
  Sex: Male
  Weight: 69 kg

DRUGS (10)
  1. ESBRIET [Suspect]
     Active Substance: PIRFENIDONE
     Indication: PULMONARY FIBROSIS
  2. MULTIVITAMIN [Concomitant]
     Active Substance: VITAMINS
  3. METOPROLOL SUCCINATE. [Concomitant]
     Active Substance: METOPROLOL SUCCINATE
  4. ROSUVASTATIN. [Concomitant]
     Active Substance: ROSUVASTATIN
  5. LEVOTHYROXINE. [Concomitant]
     Active Substance: LEVOTHYROXINE
  6. PREDNISONE. [Concomitant]
     Active Substance: PREDNISONE
  7. FENOFIBRATE. [Concomitant]
     Active Substance: FENOFIBRATE
  8. ASPIRIN. [Concomitant]
     Active Substance: ASPIRIN
  9. BUDESONIDE/FORMOTEROL [Concomitant]
     Active Substance: BUDESONIDE\FORMOTEROL
  10. TIOTROPIUM [Concomitant]
     Active Substance: TIOTROPIUM

REACTIONS (10)
  - Neutropenia [None]
  - Bradycardia [None]
  - Agonal death struggle [None]
  - Liver function test abnormal [None]
  - Haemoptysis [None]
  - Respiratory distress [None]
  - Weight decreased [None]
  - Sepsis [None]
  - Hypotension [None]
  - Decreased appetite [None]

NARRATIVE: CASE EVENT DATE: 20160228
